FAERS Safety Report 9251498 (Version 3)
Quarter: 2014Q1

REPORT INFORMATION
  Report Type: Spontaneous
  Country: US (occurrence: US)
  Receive Date: 20130424
  Receipt Date: 20140214
  Transmission Date: 20141002
  Serious: Yes (Disabling)
  Sender: FDA-Public Use
  Company Number: US-ASTRAZENECA-2013SE27495

PATIENT
  Age: 63 Year
  Sex: Female
  Weight: 81.6 kg

DRUGS (21)
  1. NEXIUM [Suspect]
     Indication: GASTROOESOPHAGEAL REFLUX DISEASE
     Route: 048
     Dates: start: 2002
  2. NEXIUM [Suspect]
     Indication: GASTROOESOPHAGEAL REFLUX DISEASE
     Route: 048
     Dates: start: 20100325
  3. NEXIUM [Suspect]
     Indication: GASTROOESOPHAGEAL REFLUX DISEASE
     Route: 048
     Dates: start: 20041019
  4. NEXIUM [Suspect]
     Indication: GASTROOESOPHAGEAL REFLUX DISEASE
     Route: 048
     Dates: start: 20040220
  5. PRILOSEC [Suspect]
     Indication: GASTROOESOPHAGEAL REFLUX DISEASE
     Route: 048
     Dates: start: 2002, end: 2012
  6. PROTONIX [Concomitant]
     Indication: GASTROOESOPHAGEAL REFLUX DISEASE
     Dates: start: 2002, end: 2012
  7. PREVACID [Concomitant]
     Indication: GASTROOESOPHAGEAL REFLUX DISEASE
     Dates: start: 2002, end: 2012
  8. ZANTAC [Concomitant]
     Indication: GASTROOESOPHAGEAL REFLUX DISEASE
     Dates: start: 2002, end: 2012
  9. PEPCID [Concomitant]
     Indication: GASTROOESOPHAGEAL REFLUX DISEASE
     Dates: start: 2002, end: 2012
  10. MYLANTA OTC [Concomitant]
     Indication: GASTROOESOPHAGEAL REFLUX DISEASE
     Dosage: AS NEEDED
     Dates: start: 2002, end: 2012
  11. VITAMIN D [Concomitant]
     Indication: VITAMIN SUPPLEMENTATION
  12. VITAMIN B1 [Concomitant]
     Indication: VITAMIN SUPPLEMENTATION
  13. VITAMIN B3 [Concomitant]
     Indication: VITAMIN SUPPLEMENTATION
  14. HYDROCODONE [Concomitant]
     Indication: PAIN
  15. TYLENOL [Concomitant]
     Indication: PAIN
  16. SUCRALFATE [Concomitant]
     Indication: ULCER
  17. PRAVASTATIN [Concomitant]
     Indication: MYOCARDIAL INFARCTION
  18. ALBUTEROL [Concomitant]
     Indication: ASTHMA
  19. MORPHINE [Concomitant]
     Indication: PAIN
  20. FOSOMAX [Concomitant]
  21. CLONAZEPAM [Concomitant]
     Indication: ANXIETY

REACTIONS (13)
  - Mental disorder [Unknown]
  - Osteoporosis [Unknown]
  - Systemic lupus erythematosus [Unknown]
  - Bone disorder [Unknown]
  - Multiple fractures [Unknown]
  - Ankle fracture [Unknown]
  - Ligament sprain [Unknown]
  - Calcium deficiency [Unknown]
  - Arthritis [Unknown]
  - Angina pectoris [Unknown]
  - Vitamin D deficiency [Unknown]
  - Fall [Unknown]
  - Road traffic accident [Unknown]
